FAERS Safety Report 13924341 (Version 1)
Quarter: 2017Q3

REPORT INFORMATION
  Report Type: Spontaneous
  Country: US (occurrence: US)
  Receive Date: 20170831
  Receipt Date: 20170831
  Transmission Date: 20171127
  Serious: Yes (Hospitalization, Other)
  Sender: FDA-Public Use
  Company Number: PHHY2017US125671

PATIENT
  Age: 65 Year
  Sex: Female

DRUGS (1)
  1. METHOTREXATE. [Suspect]
     Active Substance: METHOTREXATE
     Indication: PRODUCT USED FOR UNKNOWN INDICATION
     Route: 065

REACTIONS (7)
  - Hypoxia [Unknown]
  - Acute respiratory distress syndrome [Unknown]
  - Pneumonitis [Unknown]
  - Dyspnoea [Unknown]
  - Productive cough [Unknown]
  - Pyrexia [Unknown]
  - Tachycardia [Unknown]
